FAERS Safety Report 8569847-4 (Version None)
Quarter: 2012Q3

REPORT INFORMATION
  Report Type: 
  Country: None (occurrence: None)
  Receive Date: 20120803
  Receipt Date: 20120402
  Transmission Date: 20120928
  Serious: No
  Sender: FDA-Public Use
  Company Number: US-ABBOTT-12P-163-0920573-00

PATIENT
  Sex: Female
  Weight: 69.916 kg

DRUGS (4)
  1. FLAGYL [Suspect]
     Indication: VAGINAL INFECTION
     Dates: start: 20120301, end: 20120401
  2. FLAGYL [Suspect]
     Indication: BACTERIAL INFECTION
  3. ZETIA [Concomitant]
     Indication: PRODUCT USED FOR UNKNOWN INDICATION
  4. NIASPAN [Suspect]
     Indication: BLOOD CHOLESTEROL INCREASED
     Dates: start: 20120301

REACTIONS (8)
  - BACTERIAL INFECTION [None]
  - VAGINAL INFECTION [None]
  - SKIN BURNING SENSATION [None]
  - PARAESTHESIA [None]
  - RASH PAPULAR [None]
  - FEELING HOT [None]
  - FLUSHING [None]
  - NAUSEA [None]
